FAERS Safety Report 17452528 (Version 1)
Quarter: 2020Q1

REPORT INFORMATION
  Report Type: Spontaneous
  Country: US (occurrence: US)
  Receive Date: 20200224
  Receipt Date: 20200224
  Transmission Date: 20200409
  Serious: Yes (Other)
  Sender: FDA-Public Use
  Company Number: US-PFIZER INC-2020063037

PATIENT
  Sex: Female

DRUGS (1)
  1. CHAPSTICK MOISTURIZER [Suspect]
     Active Substance: OCTINOXATE\OXYBENZONE\PETROLATUM
     Dosage: UNK

REACTIONS (1)
  - Skin cancer [Unknown]
